FAERS Safety Report 8885905 (Version 1)
Quarter: 2012Q4

REPORT INFORMATION
  Report Type: 
  Country: US (occurrence: US)
  Receive Date: 20121105
  Receipt Date: 20121105
  Transmission Date: 20130627
  Serious: No
  Sender: FDA-Public Use
  Company Number: US-PFIZER INC-2012274858

PATIENT
  Age: 51 Year
  Sex: Male
  Weight: 81.63 kg

DRUGS (8)
  1. CHANTIX [Suspect]
     Indication: SMOKING CESSATION THERAPY
     Dosage: UNK
     Dates: start: 201208, end: 201209
  2. LORAZEPAM [Concomitant]
     Indication: ANXIETY
     Dosage: 1 mg, 1x/day
     Route: 048
  3. PAXIL [Concomitant]
     Indication: DEPRESSION
     Dosage: UNK
  4. SIMVASTATIN [Concomitant]
     Dosage: 20 mg, UNK
  5. OMEPRAZOLE [Concomitant]
     Dosage: 20 mg, UNK
  6. NAPROXEN [Concomitant]
     Dosage: 500 mg, UNK
  7. METOPROLOL [Concomitant]
     Dosage: 25 mg, UNK
  8. ASPIRIN [Concomitant]
     Dosage: 81 mg, 2x/day

REACTIONS (3)
  - Abnormal dreams [Unknown]
  - Constipation [Unknown]
  - Agitation [Unknown]
